FAERS Safety Report 6679238-9 (Version None)
Quarter: 2010Q2

REPORT INFORMATION
  Report Type: 
  Country: None (occurrence: None)
  Receive Date: 20100412
  Receipt Date: 20100324
  Transmission Date: 20101027
  Serious: Yes (Other)
  Sender: FDA-Public Use
  Company Number: 20100132

PATIENT
  Age: 66 Year
  Sex: Female
  Weight: 67.586 kg

DRUGS (1)
  1. VENOFER [Suspect]
     Indication: IRON DEFICIENCY ANAEMIA
     Dosage: 300 MG ONCE WEEKLY X3
     Dates: start: 20100315, end: 20100315

REACTIONS (1)
  - INJECTION SITE PHLEBITIS [None]
